FAERS Safety Report 10053236 (Version 1)
Quarter: 2014Q2

REPORT INFORMATION
  Report Type: Spontaneous
  Country: GR (occurrence: GR)
  Receive Date: 20140402
  Receipt Date: 20140402
  Transmission Date: 20141212
  Serious: Yes (Hospitalization)
  Sender: FDA-Public Use
  Company Number: GR-VIIV HEALTHCARE LIMITED-B0981802A

PATIENT
  Age: 51 Year
  Sex: Male
  Weight: 81 kg

DRUGS (3)
  1. KIVEXA [Suspect]
     Indication: HIV INFECTION
     Route: 065
     Dates: start: 20100317
  2. REYATAZ [Suspect]
     Indication: HIV INFECTION
     Route: 065
     Dates: start: 20100317
  3. IRBESARTAN [Suspect]
     Indication: PRODUCT USED FOR UNKNOWN INDICATION
     Dosage: 75MG PER DAY
     Route: 065

REACTIONS (3)
  - IgA nephropathy [Unknown]
  - Type 2 diabetes mellitus [Recovering/Resolving]
  - Pancreatitis [Unknown]
